FAERS Safety Report 10610600 (Version 2)
Quarter: 2014Q4

REPORT INFORMATION
  Report Type: Spontaneous
  Country: CN (occurrence: CN)
  Receive Date: 20141126
  Receipt Date: 20141204
  Transmission Date: 20150529
  Serious: Yes (Other)
  Sender: FDA-Public Use
  Company Number: CN-PFIZER INC-2014321346

PATIENT
  Age: 64 Year
  Sex: Male

DRUGS (3)
  1. IMIPENEM AND CILASTATIN [Concomitant]
     Active Substance: CILASTATIN SODIUM\IMIPENEM
  2. TAZOCIN [Suspect]
     Active Substance: PIPERACILLIN SODIUM\TAZOBACTAM SODIUM
     Indication: ANTI-INFECTIVE THERAPY
     Dosage: 4.5 G
     Route: 041
     Dates: start: 20081119, end: 20081119
  3. AMIKACIN [Concomitant]
     Active Substance: AMIKACIN
     Dosage: 0.5 G, 2X/DAY
     Route: 041
     Dates: start: 20081118

REACTIONS (1)
  - Angina pectoris [Recovered/Resolved]

NARRATIVE: CASE EVENT DATE: 20081119
